FAERS Safety Report 6215795-4 (Version None)
Quarter: 2009Q2

REPORT INFORMATION
  Report Type: 
  Country: None (occurrence: None)
  Receive Date: 20090603
  Receipt Date: 20090518
  Transmission Date: 20091009
  Serious: Yes (Death, Disabling)
  Sender: FDA-Public Use
  Company Number: IT-GENENTECH-277399

PATIENT
  Sex: Female

DRUGS (5)
  1. BEVACIZUMAB [Suspect]
     Indication: BREAST CANCER METASTATIC
     Dosage: 15 MG/KG, Q3W
     Route: 042
     Dates: start: 20071004, end: 20081228
  2. CAPECITABINE [Suspect]
     Indication: BREAST CANCER METASTATIC
     Dosage: 1500 MG, QD
     Route: 065
     Dates: start: 20081031, end: 20081228
  3. CAPECITABINE [Suspect]
     Dosage: 1500 MG, UNK
     Route: 065
     Dates: end: 20090115
  4. CYCLOPHOSPHAMIDE [Suspect]
     Indication: BREAST CANCER METASTATIC
     Dosage: 50 MG, QD
     Route: 065
     Dates: start: 20081031, end: 20081228
  5. CYCLOPHOSPHAMIDE [Suspect]
     Dosage: 50 MG, UNK
     Route: 065
     Dates: end: 20090115

REACTIONS (1)
  - CONGESTIVE CARDIOMYOPATHY [None]
